FAERS Safety Report 10037741 (Version 1)
Quarter: 2014Q1

REPORT INFORMATION
  Report Type: Spontaneous
  Country: US (occurrence: US)
  Receive Date: 20140326
  Receipt Date: 20140326
  Transmission Date: 20141002
  Serious: Yes (Other)
  Sender: FDA-Public Use
  Company Number: US-PFIZER INC-2014081883

PATIENT
  Age: 64 Year
  Sex: Male
  Weight: 101.59 kg

DRUGS (6)
  1. LYRICA [Suspect]
     Indication: HYPOAESTHESIA
     Dosage: 200 MG, 2-3 TIMES A DAY
  2. LYRICA [Suspect]
     Indication: BURNING SENSATION
  3. METOPROLOL ER [Concomitant]
     Indication: MYOCARDIAL INFARCTION
     Dosage: 25 MG, DAILY
     Dates: start: 2009
  4. METOPROLOL ER [Concomitant]
     Indication: BLOOD PRESSURE ABNORMAL
  5. FINASTERIDE [Concomitant]
     Indication: CARDIAC DISORDER
     Dosage: 5MG DAILY IN THE MORNING
  6. VITAMIN D [Concomitant]
     Dosage: 5000 IU, DAILY

REACTIONS (1)
  - Pain in extremity [Unknown]
